FAERS Safety Report 10784753 (Version 1)
Quarter: 2015Q1

REPORT INFORMATION
  Report Type: Spontaneous
  Country: MX (occurrence: None)
  Receive Date: 20150209
  Receipt Date: 20150209
  Transmission Date: 20150721
  Serious: Yes (Hospitalization)
  Sender: FDA-Public Use
  Company Number: 2015-000207

PATIENT
  Age: 74 Year
  Sex: Female

DRUGS (8)
  1. HUMALOG MIX (INSULIN LISPRO, INSULIN LISPRO PROTAMINE SUSPENSION) [Concomitant]
  2. JANUVIA [Concomitant]
     Active Substance: SITAGLIPTIN PHOSPHATE
  3. PEMIX (PIROZADIL) [Concomitant]
  4. EMSELEX [Suspect]
     Active Substance: DARIFENACIN HYDROBROMIDE
     Indication: HYPERTONIC BLADDER
     Route: 048
     Dates: start: 20141012, end: 20141119
  5. VERAPAMILO (VERAPMAIL HYDROCHLORIDE) [Concomitant]
  6. MICARDIS PLUS (HYDROCHLOROTHIAZIDE, TELMISARTAN) [Concomitant]
  7. TRAMACET (PARACETAMOL, TRAMADOL HYDROCHLORIDE) [Concomitant]
  8. UNIVAL (SUCRALFATE) [Concomitant]

REACTIONS (1)
  - Lower gastrointestinal haemorrhage [None]

NARRATIVE: CASE EVENT DATE: 20141012
